FAERS Safety Report 5383711-3 (Version None)
Quarter: 2007Q3

REPORT INFORMATION
  Report Type: 
  Country: None (occurrence: None)
  Receive Date: 20070706
  Receipt Date: 20070621
  Transmission Date: 20080115
  Serious: Yes (Hospitalization)
  Sender: FDA-Public Use
  Company Number: T200601489

PATIENT
  Age: 37 Year
  Sex: Male
  Weight: 118.8 kg

DRUGS (13)
  1. HYDROCODONE BITARTRATE + ACETAMINOPHEN [Suspect]
     Dates: start: 20060616
  2. FENTANYL [Suspect]
     Indication: BREAKTHROUGH PAIN
     Dosage: 600 UG, PRN, BUCCAL
     Route: 002
     Dates: start: 20060618, end: 20060808
  3. ROXICODONE [Suspect]
     Dosage: 120 MG, QD, ORAL
     Route: 048
     Dates: start: 20060616
  4. NOVOLOG [Concomitant]
  5. LANTUS [Concomitant]
  6. ACEON /00790702/(PERINDOPRIL ERBUMINE) [Concomitant]
  7. LEVITRA [Concomitant]
  8. STOOL SOFTENER (DOCUSATE SODIUM) [Concomitant]
  9. NEURONTIN [Concomitant]
  10. PRAVACHOL [Concomitant]
  11. ATIVAN [Concomitant]
  12. PHENERGAN /00033001/ (PROMETHAZINE) [Concomitant]
  13. STOOL SOFTENER (DOCUSATE SODIUM) [Concomitant]

REACTIONS (2)
  - DRUG WITHDRAWAL SYNDROME [None]
  - TREATMENT NONCOMPLIANCE [None]
